FAERS Safety Report 8009208-X (Version None)
Quarter: 2011Q4

REPORT INFORMATION
  Report Type: 
  Country: None (occurrence: None)
  Receive Date: 20111221
  Receipt Date: 20111207
  Transmission Date: 20120403
  Serious: Yes (Other)
  Sender: FDA-Public Use
  Company Number: DSM-2011-01333

PATIENT
  Age: 41 Year
  Sex: Female

DRUGS (7)
  1. SPASMO-CANULASE (GLUTAMIC ACID HYDROCHLORIDE, SODIUM DEHYDROCHOLATE, M [Concomitant]
  2. TRIOFAN (XYLOMETAZOLINE HYDROCHLORIDE, CARBOCISTEINE)(XYLOMETAZOLINE H [Concomitant]
  3. PREDNISONE [Concomitant]
  4. DAFALGAN (PARACETAMOL)(PARACETAMOL) [Concomitant]
  5. OLMESARTAN MEDOXOMIL [Suspect]
     Indication: ESSENTIAL HYPERTENSION
     Dosage: 40/12.5 MG (1 IN 1 D),ORAL
     Route: 048
     Dates: start: 20080101
  6. MEFENAMIC ACID [Suspect]
     Indication: PRODUCT USED FOR UNKNOWN INDICATION
     Dosage: 1500 MG (500 MG,3 IN 1 D),
     Dates: start: 20110801, end: 20110901
  7. PERENTEROL (SACCHAROMYCES BOULARDII)(SACCHAROMYCES BOULARDII) [Concomitant]

REACTIONS (3)
  - PREGNANCY [None]
  - MATERNAL EXPOSURE DURING PREGNANCY [None]
  - ABORTION INDUCED [None]
